FAERS Safety Report 6657201-1 (Version None)
Quarter: 2010Q1

REPORT INFORMATION
  Report Type: 
  Country: None (occurrence: None)
  Receive Date: 20100330
  Receipt Date: 20100317
  Transmission Date: 20100710
  Serious: Yes (Hospitalization)
  Sender: FDA-Public Use
  Company Number: ES-ELI_LILLY_AND_COMPANY-ES201003004655

PATIENT
  Sex: Female
  Weight: 58.4 kg

DRUGS (9)
  1. PEMETREXED [Suspect]
     Indication: NON-SMALL CELL LUNG CANCER
     Dosage: 500 MG/M2, DAY 1 EVERY 21 DAYS
     Route: 042
     Dates: start: 20100223
  2. CISPLATIN [Suspect]
     Indication: NON-SMALL CELL LUNG CANCER
     Dosage: 75 MG/M2, DAY 1 EVERY 21 DAYS
     Route: 042
     Dates: start: 20100223
  3. FOLIC ACID [Concomitant]
     Indication: PROPHYLAXIS
     Dates: start: 20100218
  4. VITAMIN B-12 [Concomitant]
     Indication: PROPHYLAXIS
     Dates: start: 20100218
  5. DEXAMETHASONE [Concomitant]
     Indication: PROPHYLAXIS
     Dates: start: 20100222, end: 20100224
  6. OMEPRAZOLE [Concomitant]
     Indication: PROPHYLAXIS
     Dates: start: 20091001
  7. FENTANYL [Concomitant]
     Indication: PAIN
     Dates: start: 20100208
  8. LORAZEPAM [Concomitant]
     Indication: ANXIETY
     Dates: start: 20100212
  9. DOMPERIDONE [Concomitant]
     Indication: PROPHYLAXIS
     Dates: start: 20100219

REACTIONS (1)
  - PULMONARY EMBOLISM [None]
